FAERS Safety Report 4284454-X (Version None)
Quarter: 2004Q1

REPORT INFORMATION
  Report Type: 
  Country: None (occurrence: None)
  Receive Date: 20040130
  Receipt Date: 20040120
  Transmission Date: 20041129
  Serious: Yes (Death, Other)
  Sender: FDA-Public Use
  Company Number: 2004195450GB

PATIENT
  Age: 78 Year
  Sex: Male

DRUGS (1)
  1. DELTA-CORTEF [Suspect]
     Dosage: 1 MG/KG

REACTIONS (1)
  - GASTRIC CANCER [None]
